FAERS Safety Report 8311209-9 (Version None)
Quarter: 2012Q2

REPORT INFORMATION
  Report Type: 
  Country: None (occurrence: None)
  Receive Date: 20120425
  Receipt Date: 20120417
  Transmission Date: 20120825
  Serious: Yes (Other)
  Sender: FDA-Public Use
  Company Number: US-BAYER-2012-018331

PATIENT
  Age: 38 Year
  Sex: Female
  Weight: 64.853 kg

DRUGS (2)
  1. MIRENA [Suspect]
     Indication: MENORRHAGIA
  2. MIRENA [Suspect]
     Indication: CONTRACEPTION
     Dosage: 20 MCG/24HR, CONT
     Dates: start: 20111122, end: 20120109

REACTIONS (2)
  - UTERINE HAEMORRHAGE [None]
  - DEVICE DISLOCATION [None]
